FAERS Safety Report 17926716 (Version 3)
Quarter: 2020Q4

REPORT INFORMATION
  Report Type: Spontaneous
  Country: US (occurrence: US)
  Receive Date: 20200623
  Receipt Date: 20201127
  Transmission Date: 20210113
  Serious: No
  Sender: FDA-Public Use
  Company Number: US-SHIRE-US202016394

PATIENT
  Age: 40 Year
  Sex: Female
  Weight: 117.91 kg

DRUGS (49)
  1. HYQVIA [Suspect]
     Active Substance: HUMAN IMMUNOGLOBULIN G\HYALURONIDASE RECOMBINANT HUMAN
     Indication: SELECTIVE IGG SUBCLASS DEFICIENCY
  2. DIPHENHYDRAMINE. [Concomitant]
     Active Substance: DIPHENHYDRAMINE
  3. INVOKANA [Concomitant]
     Active Substance: CANAGLIFLOZIN
  4. ASPIRINE [Concomitant]
     Active Substance: ASPIRIN
  5. VITAMIN B COMPLEX [Concomitant]
     Active Substance: CYANOCOBALAMIN\DEXPANTHENOL\NIACINAMIDE\PYRIDOXINE HYDROCHLORIDE\RIBOFLAVIN 5^-PHOSPHATE SODIUM\THIAMINE HYDROCHLORIDE\VITAMIN B COMPLEX
  6. LISINOPRIL. [Concomitant]
     Active Substance: LISINOPRIL
  7. FLUCONAZOLE. [Concomitant]
     Active Substance: FLUCONAZOLE
  8. BUMETANIDE. [Concomitant]
     Active Substance: BUMETANIDE
  9. GABAPENTIN. [Concomitant]
     Active Substance: GABAPENTIN
  10. LO LOESTRIN FE [Concomitant]
     Active Substance: ETHINYL ESTRADIOL\NORETHINDRONE ACETATE
  11. VITAMINS NOS [Concomitant]
     Active Substance: VITAMINS
  12. NORMAL SALINE [Concomitant]
     Active Substance: SODIUM CHLORIDE
  13. LMX [Concomitant]
  14. PREDNISONE. [Concomitant]
     Active Substance: PREDNISONE
  15. CEPHALEXIN. [Concomitant]
     Active Substance: CEPHALEXIN
  16. MOTRIN [Concomitant]
     Active Substance: IBUPROFEN
  17. LOESTRIN NOS [Concomitant]
     Active Substance: ETHINYL ESTRADIOL\NORETHINDRONE ACETATE
  18. NYSTATIN. [Concomitant]
     Active Substance: NYSTATIN
  19. BUDESONIDE. [Concomitant]
     Active Substance: BUDESONIDE
  20. AZITHROMYCIN ANHYDROUS. [Concomitant]
     Active Substance: AZITHROMYCIN ANHYDROUS
  21. PROVENTIL [Concomitant]
     Active Substance: ALBUTEROL
  22. HYDROXYCHLOROQUINE [Concomitant]
     Active Substance: HYDROXYCHLOROQUINE
  23. LEUCOVORIN. [Concomitant]
     Active Substance: LEUCOVORIN
  24. DIFLUCAN [Concomitant]
     Active Substance: FLUCONAZOLE
  25. SYMBICORT [Concomitant]
     Active Substance: BUDESONIDE\FORMOTEROL FUMARATE DIHYDRATE
  26. PEPCID [Concomitant]
     Active Substance: FAMOTIDINE
  27. DILTIAZEM. [Concomitant]
     Active Substance: DILTIAZEM
  28. EPINEPHRINE. [Concomitant]
     Active Substance: EPINEPHRINE
  29. CALCIUM [Concomitant]
     Active Substance: CALCIUM
  30. HYQVIA [Suspect]
     Active Substance: HUMAN IMMUNOGLOBULIN G\HYALURONIDASE RECOMBINANT HUMAN
     Indication: SELECTIVE IGA IMMUNODEFICIENCY
     Dosage: 45 GRAM, EVERY 4 WK
     Route: 058
     Dates: start: 20151005
  31. PULMICORT TURBUHALER [Concomitant]
     Active Substance: BUDESONIDE
  32. FENTANYL. [Concomitant]
     Active Substance: FENTANYL
  33. AMITIZA [Concomitant]
     Active Substance: LUBIPROSTONE
  34. ZOFRAN [Concomitant]
     Active Substance: ONDANSETRON HYDROCHLORIDE
  35. HYQVIA [Suspect]
     Active Substance: HUMAN IMMUNOGLOBULIN G\HYALURONIDASE RECOMBINANT HUMAN
     Indication: IMMUNODEFICIENCY COMMON VARIABLE
     Dosage: 45 GRAM, EVERY 4 WK
     Route: 058
     Dates: start: 20151001
  36. CLINDAMYCIN. [Concomitant]
     Active Substance: CLINDAMYCIN
  37. NOVOLOG [Concomitant]
     Active Substance: INSULIN ASPART
  38. GENTAMICIN. [Concomitant]
     Active Substance: GENTAMICIN
  39. SYNTHROID [Concomitant]
     Active Substance: LEVOTHYROXINE SODIUM
  40. CLOTRIMAZOLE. [Concomitant]
     Active Substance: CLOTRIMAZOLE
  41. PROBIOTIC [Concomitant]
     Active Substance: PROBIOTICS NOS
  42. ROBAXIN [Concomitant]
     Active Substance: METHOCARBAMOL
  43. COLCRYS [Concomitant]
     Active Substance: COLCHICINE
  44. ACETAMINOPHEN. [Concomitant]
     Active Substance: ACETAMINOPHEN
  45. CYCLOBENZAPRINE. [Concomitant]
     Active Substance: CYCLOBENZAPRINE
  46. HYDROCODONE/ACETAMINOPHEN [Concomitant]
     Active Substance: ACETAMINOPHEN\HYDROCODONE
  47. PROCHLORPERAZINE. [Concomitant]
     Active Substance: PROCHLORPERAZINE
  48. VITAMIN D3 [Concomitant]
     Active Substance: CHOLECALCIFEROL
  49. OMEPRAZOLE. [Concomitant]
     Active Substance: OMEPRAZOLE

REACTIONS (2)
  - Sinusitis [Not Recovered/Not Resolved]
  - Infusion site infection [Unknown]

NARRATIVE: CASE EVENT DATE: 20200617
